FAERS Safety Report 6222722-2 (Version None)
Quarter: 2009Q2

REPORT INFORMATION
  Report Type: 
  Country: None (occurrence: None)
  Receive Date: 20090611
  Receipt Date: 20090611
  Transmission Date: 20091009
  Serious: Yes (Other)
  Sender: FDA-Public Use
  Company Number: US-PFIZER INC-2009206334

PATIENT
  Sex: Male
  Weight: 11.6 kg

DRUGS (2)
  1. SOLU-MEDROL [Suspect]
     Indication: LYMPHOCYTIC LEUKAEMIA
     Dates: start: 20090413
  2. CORTICOSTEROIDS [Concomitant]
     Dosage: UNK

REACTIONS (2)
  - DRUG INEFFECTIVE [None]
  - LYMPHOCYTIC LEUKAEMIA [None]
